FAERS Safety Report 6439600-6 (Version None)
Quarter: 2009Q4

REPORT INFORMATION
  Report Type: 
  Country: None (occurrence: None)
  Receive Date: 20091113
  Receipt Date: 20091110
  Transmission Date: 20100525
  Serious: Yes (Hospitalization)
  Sender: FDA-Public Use
  Company Number: B0603096A

PATIENT
  Sex: Male

DRUGS (2)
  1. AUGMENTIN '125' [Suspect]
     Dosage: 100MG UNKNOWN
     Route: 048
     Dates: start: 20090926, end: 20090928
  2. TAMIFLU [Suspect]
     Dosage: 25MG TWICE PER DAY
     Route: 048
     Dates: start: 20090926, end: 20090928

REACTIONS (2)
  - DIARRHOEA [None]
  - DIARRHOEA HAEMORRHAGIC [None]
